FAERS Safety Report 7470171-1 (Version None)
Quarter: 2011Q2

REPORT INFORMATION
  Report Type: 
  Country: None (occurrence: None)
  Receive Date: 20110510
  Receipt Date: 20110503
  Transmission Date: 20111010
  Serious: Yes (Congenital Anomaly)
  Sender: FDA-Public Use
  Company Number: B0717836A

PATIENT
  Sex: Female

DRUGS (2)
  1. BECLOMETHASON [Concomitant]
     Route: 064
  2. AVAMYS [Suspect]
     Dosage: 27.5MCG TWICE PER DAY
     Route: 064
     Dates: start: 20100101, end: 20100526

REACTIONS (2)
  - DRUG EXPOSURE DURING PREGNANCY [None]
  - CONGENITAL HAND MALFORMATION [None]
